FAERS Safety Report 17552880 (Version 1)
Quarter: 2020Q1

REPORT INFORMATION
  Report Type: Report from Study
  Country: None (occurrence: BR)
  Receive Date: 20200318
  Receipt Date: 20200318
  Transmission Date: 20200409
  Serious: Yes (Other)
  Sender: FDA-Public Use
  Company Number: BR-ABBVIE-20K-020-3320915-00

PATIENT
  Sex: Female
  Weight: 47 kg

DRUGS (1)
  1. HUMIRA [Suspect]
     Active Substance: ADALIMUMAB
     Indication: RHEUMATOID ARTHRITIS
     Route: 058
     Dates: start: 20140901

REACTIONS (9)
  - Blindness [Not Recovered/Not Resolved]
  - Cataract [Unknown]
  - Burning sensation [Not Recovered/Not Resolved]
  - Injection site pain [Recovered/Resolved]
  - Eye swelling [Recovering/Resolving]
  - Dry skin [Unknown]
  - Blood disorder [Unknown]
  - Product administered at inappropriate site [Unknown]
  - Hypersensitivity [Recovering/Resolving]

NARRATIVE: CASE EVENT DATE: 2018
